FAERS Safety Report 8842890 (Version 1)
Quarter: 2012Q4

REPORT INFORMATION
  Report Type: 
  Country: GB (occurrence: GB)
  Receive Date: 20121016
  Receipt Date: 20121016
  Transmission Date: 20130627
  Serious: Yes (Other)
  Sender: FDA-Public Use
  Company Number: GB-TEVA-359187ISR

PATIENT
  Age: 64 Year
  Sex: Male

DRUGS (5)
  1. PHENYTOIN [Suspect]
     Indication: EPILEPSY
     Route: 065
  2. PHENOBARBITAL [Suspect]
     Indication: EPILEPSY
     Route: 065
  3. LAMICTAL [Suspect]
     Indication: EPILEPSY
     Dosage: 50 Milligram Daily;
     Route: 048
     Dates: start: 20120512
  4. OMEPRAZOLE [Concomitant]
  5. ADCAL [Concomitant]

REACTIONS (10)
  - Vitreous detachment [Recovering/Resolving]
  - Dry mouth [Recovering/Resolving]
  - Fatigue [Recovering/Resolving]
  - Headache [Recovering/Resolving]
  - Diplopia [Recovering/Resolving]
  - Vision blurred [Recovering/Resolving]
  - Lacrimation increased [Recovering/Resolving]
  - Eyelid oedema [Recovering/Resolving]
  - Visual impairment [Recovering/Resolving]
  - Photopsia [Recovering/Resolving]
